FAERS Safety Report 6162604-8 (Version None)
Quarter: 2009Q2

REPORT INFORMATION
  Report Type: 
  Country: None (occurrence: None)
  Receive Date: 20090421
  Receipt Date: 20050413
  Transmission Date: 20091009
  Serious: No
  Sender: FDA-Public Use
  Company Number: US-SOLVAY-00205001225

PATIENT
  Age: 310 Month
  Sex: Female
  Weight: 52 kg

DRUGS (3)
  1. VITAMIN TAB [Concomitant]
     Indication: ILL-DEFINED DISORDER
     Dosage: DAILY DOSE: 1 DOSAGE FORM
     Route: 048
  2. ANDROGEL [Suspect]
     Indication: ACCIDENTAL EXPOSURE
     Dosage: DAILY DOSE:  UNKNOWN
     Route: 062
     Dates: start: 20030101, end: 20040101
  3. ANDROGEL [Suspect]
     Dosage: DAILY DOSE: 10 GRAM(S)
     Route: 062
     Dates: start: 20050301

REACTIONS (2)
  - ACCIDENTAL EXPOSURE [None]
  - HIRSUTISM [None]
